FAERS Safety Report 23921761 (Version 2)
Quarter: 2024Q3

REPORT INFORMATION
  Report Type: Spontaneous
  Country: JP (occurrence: JP)
  Receive Date: 20240530
  Receipt Date: 20240809
  Transmission Date: 20241016
  Serious: Yes (Other)
  Sender: ORGANON
  Company Number: JP-ORGANON-O2405JPN002498

PATIENT
  Age: 5 Decade
  Sex: Male

DRUGS (2)
  1. REMERON [Suspect]
     Active Substance: MIRTAZAPINE
     Dosage: UNK
     Route: 048
  2. REMERON [Suspect]
     Active Substance: MIRTAZAPINE
     Dosage: GRADUAL INCREASE
     Route: 048

REACTIONS (2)
  - Blood glucose increased [Recovering/Resolving]
  - Hepatic function abnormal [Recovering/Resolving]
